FAERS Safety Report 20853743 (Version 1)
Quarter: 2022Q2

REPORT INFORMATION
  Report Type: Spontaneous
  Country: US (occurrence: None)
  Receive Date: 20220518
  Receipt Date: 20220518
  Transmission Date: 20220721
  Serious: Yes (Hospitalization)
  Sender: FDA-Public Use
  Company Number: None

PATIENT
  Age: 61 Year
  Sex: Male
  Weight: 96.75 kg

DRUGS (1)
  1. COPAXONE [Suspect]
     Active Substance: GLATIRAMER ACETATE
     Indication: Multiple sclerosis
     Dosage: OTHER FREQUENCY : 3 DAYS/WEEK;?
     Route: 058
     Dates: start: 20220329

REACTIONS (10)
  - Loss of consciousness [None]
  - Nausea [None]
  - Rash [None]
  - Vomiting [None]
  - Diarrhoea [None]
  - Urticaria [None]
  - Hypoaesthesia [None]
  - Panic attack [None]
  - Injection related reaction [None]
  - Product substitution issue [None]

NARRATIVE: CASE EVENT DATE: 20220516
